FAERS Safety Report 8463214-X (Version None)
Quarter: 2012Q2

REPORT INFORMATION
  Report Type: 
  Country: None (occurrence: None)
  Receive Date: 20120323
  Receipt Date: 20111108
  Transmission Date: 20120825
  Serious: Yes (Other)
  Sender: FDA-Public Use
  Company Number: 163-21880-11111141

PATIENT
  Age: 58 Year
  Sex: Male

DRUGS (5)
  1. NEUPOGEN [Concomitant]
  2. ACYCLOVIR [Concomitant]
  3. REVLIMID [Suspect]
     Indication: MULTIPLE MYELOMA
     Dosage: 25 MG, 1 IN 1 D, PO; 15 MG, QD DAYS 1-21, PO
     Route: 048
     Dates: start: 20100123
  4. REVLIMID [Suspect]
     Indication: MULTIPLE MYELOMA
     Dosage: 25 MG, 1 IN 1 D, PO; 15 MG, QD DAYS 1-21, PO
     Route: 048
     Dates: start: 20111001
  5. SYNTHROID [Concomitant]

REACTIONS (1)
  - THROMBOSIS [None]
